FAERS Safety Report 5934011-1 (Version None)
Quarter: 2008Q4

REPORT INFORMATION
  Report Type: 
  Country: None (occurrence: None)
  Receive Date: 20081029
  Receipt Date: 20081022
  Transmission Date: 20090506
  Serious: Yes (Disabling)
  Sender: FDA-Public Use
  Company Number: US-GENENTECH-270306

PATIENT
  Age: 27 Year
  Sex: Male

DRUGS (2)
  1. RAPTIVA [Suspect]
     Indication: PSORIASIS
     Dosage: 1 ML, 1/WEEK
     Route: 058
     Dates: start: 20080825, end: 20080908
  2. TACLONEX OINTMENT [Concomitant]
     Indication: DRUG USE FOR UNKNOWN INDICATION

REACTIONS (1)
  - MIGRAINE [None]
